FAERS Safety Report 11398781 (Version 1)
Quarter: 2015Q3

REPORT INFORMATION
  Report Type: Spontaneous
  Country: US (occurrence: None)
  Receive Date: 20150818
  Receipt Date: 20150818
  Transmission Date: 20151125
  Serious: No
  Sender: FDA-Public Use
  Company Number: None

PATIENT
  Age: 24 Year
  Sex: Female
  Weight: 62.6 kg

DRUGS (2)
  1. SUBOXONE [Suspect]
     Active Substance: BUPRENORPHINE HYDROCHLORIDE\NALOXONE HYDROCHLORIDE
     Indication: DRUG DEPENDENCE
     Dosage: 1 FILM 2X DAY   TAKEN UNDER THE TONGUE
     Dates: start: 20140630, end: 20150817
  2. LEVOTHOXINE [Concomitant]

REACTIONS (7)
  - Tongue disorder [None]
  - Application site irritation [None]
  - Application site swelling [None]
  - Oral mucosal discolouration [None]
  - Intentional product use issue [None]
  - Malaise [None]
  - Application site vesicles [None]

NARRATIVE: CASE EVENT DATE: 20150817
